FAERS Safety Report 5479467-6 (Version None)
Quarter: 2007Q4

REPORT INFORMATION
  Report Type: 
  Country: None (occurrence: None)
  Receive Date: 20071008
  Receipt Date: 20071001
  Transmission Date: 20080405
  Serious: Yes (Other)
  Sender: FDA-Public Use
  Company Number: JP-ASTRAZENECA-2007AP05286

PATIENT
  Age: 21756 Day
  Sex: Female
  Weight: 51 kg

DRUGS (10)
  1. CRESTOR [Suspect]
     Indication: HYPERLIPIDAEMIA
     Route: 048
     Dates: start: 20070705, end: 20070820
  2. MICARDIS [Concomitant]
     Indication: HYPERTENSION
     Route: 048
     Dates: start: 20041201
  3. MICARDIS [Concomitant]
     Route: 048
     Dates: start: 20070215, end: 20070820
  4. ADALAT [Concomitant]
     Indication: HYPERTENSION
     Route: 048
  5. ADALAT [Concomitant]
     Route: 048
     Dates: start: 20070207, end: 20070820
  6. ISOCLINE [Concomitant]
     Indication: HYPERTENSION
     Route: 048
     Dates: start: 20070207
  7. CANDESARTAN CILEXETIL [Concomitant]
     Indication: HYPERTENSION
     Route: 048
     Dates: start: 20070705, end: 20070720
  8. ASPIRIN [Concomitant]
     Dates: start: 20041201, end: 20070705
  9. NORVASC [Concomitant]
     Route: 048
     Dates: start: 20041201, end: 20070705
  10. LIPITOR [Concomitant]
     Route: 048
     Dates: start: 20041201, end: 20070705

REACTIONS (2)
  - HEAT EXHAUSTION [None]
  - HEPATIC FUNCTION ABNORMAL [None]
